FAERS Safety Report 5589103-6 (Version None)
Quarter: 2007Q4

REPORT INFORMATION
  Report Type: 
  Country: None (occurrence: None)
  Receive Date: 20071212
  Receipt Date: 20070711
  Transmission Date: 20080405
  Serious: Yes (Other)
  Sender: FDA-Public Use
  Company Number: USA-2006-0025868

PATIENT
  Age: 19 Year
  Sex: Male

DRUGS (1)
  1. OXYCONTIN [Suspect]
     Indication: DRUG ABUSER
     Dates: start: 19980101, end: 20030101

REACTIONS (3)
  - ABNORMAL BEHAVIOUR [None]
  - DRUG ABUSER [None]
  - THEFT [None]
